FAERS Safety Report 10638471 (Version 2)
Quarter: 2015Q2

REPORT INFORMATION
  Report Type: Spontaneous
  Country: IT (occurrence: IT)
  Receive Date: 20141208
  Receipt Date: 20150417
  Transmission Date: 20150821
  Serious: Yes (Hospitalization)
  Sender: FDA-Public Use
  Company Number: IT-ACTAVIS-2014-26174

PATIENT
  Age: 63 Year
  Sex: Female

DRUGS (1)
  1. IBUPROFEN (UNKNOWN) [Suspect]
     Active Substance: IBUPROFEN
     Indication: ARTHRALGIA
     Dosage: 900 MG, DAILY
     Route: 048
     Dates: start: 20141101, end: 20141105

REACTIONS (3)
  - Gamma-glutamyltransferase increased [None]
  - Aspartate aminotransferase increased [None]
  - Liver function test abnormal [Recovered/Resolved]

NARRATIVE: CASE EVENT DATE: 20141106
